FAERS Safety Report 17030712 (Version 1)
Quarter: 2019Q4

REPORT INFORMATION
  Report Type: Spontaneous
  Country: US (occurrence: US)
  Receive Date: 20191011
  Receipt Date: 20191011
  Transmission Date: 20200122
  Serious: No
  Sender: FDA-Public Use
  Company Number: None

PATIENT
  Age: 48 Year
  Sex: Female

DRUGS (1)
  1. COPAXONE [Suspect]
     Active Substance: GLATIRAMER ACETATE
     Indication: MULTIPLE SCLEROSIS
     Dosage: ?          OTHER
     Route: 058
     Dates: start: 201604, end: 201909

REACTIONS (5)
  - Rash erythematous [None]
  - Dyspnoea [None]
  - Fall [None]
  - Sensory disturbance [None]
  - Asthenia [None]

NARRATIVE: CASE EVENT DATE: 20191011
